FAERS Safety Report 4861186-8 (Version None)
Quarter: 2005Q4

REPORT INFORMATION
  Report Type: 
  Country: None (occurrence: None)
  Receive Date: 20051216
  Receipt Date: 20051213
  Transmission Date: 20060501
  Serious: Yes (Hospitalization)
  Sender: FDA-Public Use
  Company Number: HQWYE984513DEC05

PATIENT
  Age: 72 Year
  Sex: Male

DRUGS (11)
  1. CORDARONE [Suspect]
     Indication: ATRIAL FIBRILLATION
     Dosage: 200 MG 1X PER 1 DAY; ORAL
     Route: 048
     Dates: start: 20050601, end: 20051005
  2. CORDARONE [Suspect]
     Indication: ATRIAL FLUTTER
     Dosage: 200 MG 1X PER 1 DAY; ORAL
     Route: 048
     Dates: start: 20050601, end: 20051005
  3. ASPIRIN [Suspect]
     Indication: MYOCARDIAL ISCHAEMIA
     Dosage: 100 MG 1X PER 1 DAY; ORAL
     Route: 048
     Dates: start: 20050601, end: 20051001
  4. MARCUMAR [Suspect]
     Indication: ATRIAL FIBRILLATION
     Dosage: ORAL
     Route: 048
     Dates: start: 20050601, end: 20051015
  5. MARCUMAR [Suspect]
     Indication: ATRIAL FLUTTER
     Dosage: ORAL
     Route: 048
     Dates: start: 20050601, end: 20051015
  6. PANTOZOL (PANTOPRAZOLE, TABLET, DELAYED RELEASE) [Suspect]
     Dosage: 40 MG 1X PER 1 DAY; ORAL
     Route: 048
     Dates: start: 20051001
  7. PREDNISONE [Suspect]
     Indication: FACIAL PALSY
     Dosage: 100 MG 1X PER 1 DAY; ORAL
     Route: 048
     Dates: start: 20051001, end: 20051016
  8. VALTREX [Concomitant]
  9. METOPROLOL SUCCINATE [Concomitant]
  10. LESCOL [Concomitant]
  11. TOREM (TORASEMIDE) [Concomitant]

REACTIONS (4)
  - ARTHRALGIA [None]
  - INTERNATIONAL NORMALISED RATIO INCREASED [None]
  - MUSCLE HAEMORRHAGE [None]
  - PROTHROMBIN TIME SHORTENED [None]
